FAERS Safety Report 16413135 (Version 1)
Quarter: 2019Q2

REPORT INFORMATION
  Report Type: Spontaneous
  Country: FR (occurrence: FR)
  Receive Date: 20190611
  Receipt Date: 20190611
  Transmission Date: 20190711
  Serious: Yes (Hospitalization)
  Sender: FDA-Public Use
  Company Number: FR-TEVA-2019-FR-1060215

PATIENT
  Age: 57 Year
  Sex: Female
  Weight: 80 kg

DRUGS (2)
  1. ENDOXAN 1000 MG, POUDRE POUR SOLUTION INJECTABLE [Suspect]
     Active Substance: CYCLOPHOSPHAMIDE
     Indication: MUELLER^S MIXED TUMOUR
     Route: 041
     Dates: start: 20130704, end: 20130814
  2. DOXORUBICIN [Suspect]
     Active Substance: DOXORUBICIN
     Indication: MUELLER^S MIXED TUMOUR
     Route: 041
     Dates: start: 20130704, end: 20130814

REACTIONS (1)
  - Anaemia [Recovered/Resolved]

NARRATIVE: CASE EVENT DATE: 20130919
